FAERS Safety Report 18791057 (Version 1)
Quarter: 2021Q1

REPORT INFORMATION
  Report Type: Report from Study
  Country: US (occurrence: US)
  Receive Date: 20210126
  Receipt Date: 20210126
  Transmission Date: 20210419
  Serious: Yes (Hospitalization)
  Sender: FDA-Public Use
  Company Number: US-TAKEDA-2021TUS004831

PATIENT
  Sex: Male

DRUGS (2)
  1. IDURSULFASE [Suspect]
     Active Substance: IDURSULFASE
     Indication: GAUCHER^S DISEASE
     Dosage: 0.44 MILLIGRAM/KILOGRAM, Q2WEEKS
     Route: 042
     Dates: start: 20200127
  2. IDURSULFASE [Suspect]
     Active Substance: IDURSULFASE
     Dosage: 0.40 MILLIGRAM/KILOGRAM, 1/WEEK
     Route: 042
     Dates: start: 20190507, end: 20190805

REACTIONS (2)
  - Seizure [Unknown]
  - Crying [Unknown]
